FAERS Safety Report 15189465 (Version 4)
Quarter: 2018Q3

REPORT INFORMATION
  Report Type: Spontaneous
  Country: PT (occurrence: PT)
  Receive Date: 20180724
  Receipt Date: 20180911
  Transmission Date: 20181010
  Serious: Yes (Hospitalization, Other)
  Sender: FDA-Public Use
  Company Number: PT-AUROBINDO-AUR-APL-2018-036238

PATIENT
  Age: 14 Year
  Sex: Male

DRUGS (15)
  1. ALPRAZOLAM. [Suspect]
     Active Substance: ALPRAZOLAM
     Indication: OBSESSIVE-COMPULSIVE DISORDER
     Dosage: 0.5 MILLIGRAM, DAILY
     Route: 065
  2. FLUVOXAMINE [Suspect]
     Active Substance: FLUVOXAMINE
     Indication: OBSESSIVE-COMPULSIVE DISORDER
     Dosage: 125 MILLIGRAM, DAILY
     Route: 065
  3. FLUVOXAMINE [Suspect]
     Active Substance: FLUVOXAMINE
     Dosage: 125 MILLIGRAM
     Route: 065
     Dates: start: 201506
  4. ALPRAZOLAM. [Suspect]
     Active Substance: ALPRAZOLAM
     Dosage: UNK
     Route: 065
     Dates: start: 201506
  5. ALPRAZOLAM. [Suspect]
     Active Substance: ALPRAZOLAM
     Dosage: DOSE INCREASED
     Route: 065
     Dates: start: 201508
  6. ALPRAZOLAM. [Suspect]
     Active Substance: ALPRAZOLAM
     Indication: ANXIETY
     Dosage: 1 MILLIGRAM, DAILY
     Route: 065
  7. FLUVOXAMINE [Suspect]
     Active Substance: FLUVOXAMINE
     Indication: ANXIETY
     Dosage: 100 MILLIGRAM, DAILY
     Route: 065
  8. FLUVOXAMINE [Suspect]
     Active Substance: FLUVOXAMINE
     Dosage: 150 MILLIGRAM, DAILY
     Route: 065
  9. RISPERIDONE. [Suspect]
     Active Substance: RISPERIDONE
     Dosage: RESTARTED
     Route: 065
  10. RISPERIDONE. [Suspect]
     Active Substance: RISPERIDONE
     Indication: ANXIETY
     Dosage: TITRATION UP TO 0.5 MG/DAY
     Route: 065
     Dates: start: 201509
  11. ALPRAZOLAM. [Suspect]
     Active Substance: ALPRAZOLAM
     Dosage: 0.75 MILLIGRAM, DAILY
     Route: 065
  12. RISPERIDONE. [Suspect]
     Active Substance: RISPERIDONE
     Indication: OBSESSIVE-COMPULSIVE DISORDER
     Dosage: 0.5 MILLIGRAM, DAILY
     Route: 065
  13. FLUVOXAMINE [Suspect]
     Active Substance: FLUVOXAMINE
     Dosage: DOSE WAS ADJUSTED
     Route: 065
     Dates: start: 201509
  14. FLUVOXAMINE [Suspect]
     Active Substance: FLUVOXAMINE
     Dosage: 125 MILLIGRAM, DAILY
     Route: 065
     Dates: start: 201508
  15. RISPERIDONE. [Suspect]
     Active Substance: RISPERIDONE
     Dosage: UNSPECIFIED DOSE
     Route: 065

REACTIONS (13)
  - Drug ineffective [Unknown]
  - Renal injury [Unknown]
  - Dehydration [Recovered/Resolved]
  - Bradycardia [Recovered/Resolved]
  - Condition aggravated [Recovered/Resolved]
  - Gastroenteritis [Recovered/Resolved]
  - Weight decreased [Recovered/Resolved]
  - Obsessive-compulsive disorder [Recovering/Resolving]
  - Cyclothymic disorder [Recovered/Resolved]
  - Acute kidney injury [Recovered/Resolved]
  - Off label use [Recovered/Resolved]
  - Disease progression [Recovering/Resolving]
  - Therapeutic response decreased [Unknown]

NARRATIVE: CASE EVENT DATE: 2015
